FAERS Safety Report 18219787 (Version 2)
Quarter: 2021Q3

REPORT INFORMATION
  Report Type: Report from Study
  Country: DE (occurrence: DE)
  Receive Date: 20200901
  Receipt Date: 20210922
  Transmission Date: 20211014
  Serious: Yes (Death, Life-Threatening, Hospitalization, Other)
  Sender: FDA-Public Use
  Company Number: DE-BRISTOL-MYERS SQUIBB COMPANY-BMS-2020-041320

PATIENT
  Age: 57 Year
  Sex: Male

DRUGS (4)
  1. NIVOLUMAB [Suspect]
     Active Substance: NIVOLUMAB
     Indication: MALIGNANT MELANOMA
     Dosage: 1 MILLIGRAM/KILOGRAM, Q3WK
     Route: 042
     Dates: start: 20200224, end: 20200406
  2. LOPERAMIDE HYDROCHLORIDE. [Concomitant]
     Active Substance: LOPERAMIDE HYDROCHLORIDE
     Indication: PRODUCT USED FOR UNKNOWN INDICATION
     Route: 065
  3. METAMIZOL NATRIUM [Concomitant]
     Active Substance: METAMIZOLE SODIUM
     Indication: PRODUCT USED FOR UNKNOWN INDICATION
     Route: 065
  4. IPILIMUMAB [Suspect]
     Active Substance: IPILIMUMAB
     Indication: MALIGNANT MELANOMA
     Dosage: 3 MILLIGRAM/KILOGRAM, Q3WK
     Route: 065
     Dates: start: 20200224, end: 20200406

REACTIONS (17)
  - Cerebral haemorrhage [Unknown]
  - Vomiting [Unknown]
  - Dry skin [Unknown]
  - Pain [Recovered/Resolved]
  - Insomnia [Recovering/Resolving]
  - Diarrhoea [Unknown]
  - Paraesthesia [Recovering/Resolving]
  - Malignant neoplasm progression [Recovered/Resolved]
  - Dizziness [Recovering/Resolving]
  - Dermatitis bullous [Recovering/Resolving]
  - Purpura [Recovered/Resolved]
  - Blister [Unknown]
  - Brain neoplasm [Fatal]
  - Thyroiditis [Recovering/Resolving]
  - Fatigue [Recovering/Resolving]
  - Pustule [Unknown]
  - Myalgia [Recovered/Resolved]

NARRATIVE: CASE EVENT DATE: 20200224
